FAERS Safety Report 7627083-X (Version None)
Quarter: 2011Q3

REPORT INFORMATION
  Report Type: 
  Country: None (occurrence: None)
  Receive Date: 20110721
  Receipt Date: 20110719
  Transmission Date: 20111222
  Serious: Yes (Death)
  Sender: FDA-Public Use
  Company Number: US-B.I. PHARMACEUTICALS,INC./RIDGEFIELD-2011-BP-16537BP

PATIENT
  Age: 91 Year
  Sex: Female

DRUGS (10)
  1. LISINOPRIL [Concomitant]
  2. VITAMIN TAB [Concomitant]
  3. LANTUS [Concomitant]
  4. DIGOXIN [Concomitant]
  5. WELCHOL [Concomitant]
  6. COUMADIN [Concomitant]
  7. METOPROLOL TARTRATE [Concomitant]
  8. PRADAXA [Suspect]
     Indication: ATRIAL FIBRILLATION
     Dosage: 300 MG
     Dates: start: 20110601
  9. POTASSIUM [Concomitant]
  10. LASIX [Concomitant]

REACTIONS (4)
  - RECTAL HAEMORRHAGE [None]
  - CARDIAC ARREST [None]
  - CARDIOGENIC SHOCK [None]
  - GASTROINTESTINAL HAEMORRHAGE [None]
